FAERS Safety Report 9434325 (Version 1)
Quarter: 2013Q3

REPORT INFORMATION
  Report Type: Spontaneous
  Country: US (occurrence: None)
  Receive Date: 20130731
  Receipt Date: 20130731
  Transmission Date: 20140515
  Serious: Yes (Life-Threatening, Disabling)
  Sender: FDA-Public Use
  Company Number: None

PATIENT
  Sex: 0

DRUGS (2)
  1. SEROQUEL XR [Suspect]
     Indication: SCHIZOPHRENIA, PARANOID TYPE
     Dosage: 2 AT NIGHT 58 HR
  2. TRAZODONE [Suspect]
     Indication: SCHIZOPHRENIA, PARANOID TYPE
     Dosage: 2 AT NIGHT

REACTIONS (1)
  - Neuropathy peripheral [None]
